FAERS Safety Report 18482431 (Version 1)
Quarter: 2020Q4

REPORT INFORMATION
  Report Type: Spontaneous
  Country: US (occurrence: US)
  Receive Date: 20201109
  Receipt Date: 20201109
  Transmission Date: 20210114
  Serious: No
  Sender: FDA-Public Use
  Company Number: US-ALLERGAN-2023195US

PATIENT
  Age: 50 Year
  Sex: Female

DRUGS (2)
  1. LO LOESTRIN FE [Suspect]
     Active Substance: ETHINYL ESTRADIOL\NORETHINDRONE ACETATE
     Indication: MENORRHAGIA
     Dosage: UNK UNK, QD
     Route: 048
     Dates: start: 201811
  2. LO LOESTRIN FE [Suspect]
     Active Substance: ETHINYL ESTRADIOL\NORETHINDRONE ACETATE
     Indication: MIGRAINE WITH AURA

REACTIONS (3)
  - Therapeutic response unexpected [Unknown]
  - Contraindicated product administered [Unknown]
  - Off label use [Unknown]
